FAERS Safety Report 9841810 (Version 1)
Quarter: 2013Q4

REPORT INFORMATION
  Report Type: Spontaneous
  Country: US (occurrence: None)
  Receive Date: 20131211
  Receipt Date: 20131211
  Transmission Date: 20140711
  Serious: Yes (Other)
  Sender: FDA-Public Use
  Company Number: ALL1-2012-02220

PATIENT
  Age: 55 Year
  Sex: Female
  Weight: 117.9 kg

DRUGS (6)
  1. VYVANSE (LISDEXAMFETAMINE DIMESYLATE) CAPSULE [Suspect]
     Indication: ATTENTION DEFICIT/HYPERACTIVITY DISORDER
     Route: 048
     Dates: start: 201008
  2. SEROQUEL (QUETIAPINE FUMARATE) [Concomitant]
  3. LAMOTRIGINE (LAMOTRIGINE) [Concomitant]
  4. PROZAC (FLUOXETINE HYDROCHLORIDE) [Concomitant]
  5. CLONAZEPAM (CLONAZEPAM) [Concomitant]
  6. SPIRONOLACTONE (SPIRONOLACTONE) [Concomitant]

REACTIONS (6)
  - Depression [None]
  - Accommodation disorder [None]
  - Strabismus [None]
  - Nystagmus [None]
  - Mental disorder [None]
  - Anxiety [None]
